FAERS Safety Report 22658001 (Version 3)
Quarter: 2023Q4

REPORT INFORMATION
  Report Type: Spontaneous
  Country: US (occurrence: US)
  Receive Date: 20230630
  Receipt Date: 20231013
  Transmission Date: 20240110
  Serious: No
  Sender: FDA-Public Use
  Company Number: US-BRISTOL-MYERS SQUIBB COMPANY-2023-091454

PATIENT
  Age: 72 Year
  Sex: Male
  Weight: 71.21 kg

DRUGS (3)
  1. REVLIMID [Suspect]
     Active Substance: LENALIDOMIDE
     Indication: Plasma cell myeloma
     Dosage: 3 WKS ON, 1 WK OFF
     Route: 048
  2. REVLIMID [Suspect]
     Active Substance: LENALIDOMIDE
     Dosage: 3 WKS ON, 1 WK OFF
     Route: 048
  3. REVLIMID [Suspect]
     Active Substance: LENALIDOMIDE
     Route: 048

REACTIONS (7)
  - Full blood count decreased [Recovering/Resolving]
  - Paranasal sinus discomfort [Unknown]
  - Cough [Unknown]
  - Dry skin [Unknown]
  - Platelet count decreased [Unknown]
  - Diarrhoea [Unknown]
  - Paranasal sinus hypersecretion [Unknown]
